FAERS Safety Report 18407729 (Version 1)
Quarter: 2020Q4

REPORT INFORMATION
  Report Type: Spontaneous
  Country: GB (occurrence: GB)
  Receive Date: 20201020
  Receipt Date: 20201020
  Transmission Date: 20210114
  Serious: Yes (Hospitalization)
  Sender: FDA-Public Use
  Company Number: GB-MYLANLABS-2020M1088039

PATIENT
  Age: 92 Year
  Sex: Female

DRUGS (5)
  1. RAMIPRIL. [Concomitant]
     Active Substance: RAMIPRIL
     Dosage: 10 MILLIGRAM, QD
  2. WARFARIN [Suspect]
     Active Substance: WARFARIN
     Indication: ATRIAL FIBRILLATION
     Dosage: 1 MILLIGRAM (TAKE AS PRESCRIBED IN ANTICOAGULANT TREATMENT BOOK)
     Dates: start: 20200102
  3. BUMETANIDE. [Concomitant]
     Active Substance: BUMETANIDE
     Dosage: MORNING
  4. CARVEDILOL. [Concomitant]
     Active Substance: CARVEDILOL
     Dosage: 12.5 MILLIGRAM, QD
  5. MONOMIL XL [Concomitant]
     Active Substance: ISOSORBIDE MONONITRATE
     Dosage: MORNING (HALF TABLET)

REACTIONS (3)
  - Haematuria [Recovered/Resolved]
  - International normalised ratio increased [Unknown]
  - Urinary tract infection [Unknown]
